FAERS Safety Report 6946879-0 (Version None)
Quarter: 2010Q3

REPORT INFORMATION
  Report Type: 
  Country: None (occurrence: None)
  Receive Date: 20100825
  Receipt Date: 20100810
  Transmission Date: 20110219
  Serious: Yes (Other)
  Sender: FDA-Public Use
  Company Number: 2010AP001731

PATIENT
  Age: 74 Year
  Sex: Female

DRUGS (12)
  1. OMEPRAZOLE [Suspect]
     Indication: GASTROOESOPHAGEAL REFLUX DISEASE
     Dosage: 20 MG QD PO
     Route: 048
     Dates: start: 20050101, end: 20100426
  2. ATENOLOL [Concomitant]
  3. ALGINIC ACID [Concomitant]
  4. ALUMINIUN HYDROXIDE [Concomitant]
  5. CALCIUM CARBONATE [Concomitant]
  6. MAGNESIUM TRISILICATE [Concomitant]
  7. POTASSIUM BICARBONATE [Concomitant]
  8. SODIUM ALGINATE [Concomitant]
  9. SODIUM BICARBONATE [Concomitant]
  10. RAMIPRIL [Concomitant]
  11. SIMVASTATIN [Concomitant]
  12. WARFARIN [Concomitant]

REACTIONS (1)
  - PAROTITIS [None]
